FAERS Safety Report 7553688-0 (Version None)
Quarter: 2011Q2

REPORT INFORMATION
  Report Type: 
  Country: None (occurrence: None)
  Receive Date: 20110617
  Receipt Date: 20110613
  Transmission Date: 20111010
  Serious: Yes (Other)
  Sender: FDA-Public Use
  Company Number: US-AMGEN-USASP2011028280

PATIENT
  Age: 83 Year
  Sex: Female

DRUGS (7)
  1. ENBREL [Suspect]
     Dosage: 50 MG, QWK
     Route: 058
     Dates: start: 20090427, end: 20100201
  2. CELEBREX [Concomitant]
     Dosage: UNK
     Dates: end: 20110420
  3. COUMADIN [Concomitant]
     Dosage: UNK
     Dates: start: 20110427
  4. ENBREL [Suspect]
     Dosage: 50 MG, QWK
     Route: 058
     Dates: start: 20100824
  5. ENBREL [Suspect]
     Indication: RHEUMATOID ARTHRITIS
     Dosage: 50 MG, QWK
     Route: 058
     Dates: start: 20090427
  6. VOLTAREN [Concomitant]
  7. ROXICODONE [Concomitant]
     Dosage: UNK

REACTIONS (1)
  - ATRIAL FIBRILLATION [None]
